FAERS Safety Report 18768436 (Version 1)
Quarter: 2021Q1

REPORT INFORMATION
  Report Type: Spontaneous
  Country: US (occurrence: US)
  Receive Date: 20210121
  Receipt Date: 20210121
  Transmission Date: 20210419
  Serious: Yes (Hospitalization)
  Sender: FDA-Public Use
  Company Number: None

PATIENT
  Age: 94 Year
  Sex: Female
  Weight: 54.4 kg

DRUGS (1)
  1. CASIRIVIMAB/IMDEVIMAB [Suspect]
     Active Substance: CASIRIVIMAB\IMDEVIMAB
     Indication: COVID-19
     Dosage: ?          OTHER FREQUENCY:ONCE;?
     Route: 042
     Dates: start: 20210119, end: 20210119

REACTIONS (7)
  - Tremor [None]
  - Oxygen saturation decreased [None]
  - Unresponsive to stimuli [None]
  - Blood pressure decreased [None]
  - Hypoxia [None]
  - General physical health deterioration [None]
  - Bruxism [None]

NARRATIVE: CASE EVENT DATE: 20210119
